FAERS Safety Report 21200347 (Version 1)
Quarter: 2022Q3

REPORT INFORMATION
  Report Type: Spontaneous
  Country: US (occurrence: None)
  Receive Date: 20220810
  Receipt Date: 20220810
  Transmission Date: 20221027
  Serious: Yes (Hospitalization)
  Sender: FDA-Public Use
  Company Number: None

PATIENT
  Age: 67 Year
  Sex: Female

DRUGS (1)
  1. TERIPARATIDE [Suspect]
     Active Substance: TERIPARATIDE
     Indication: Senile osteoporosis
     Dosage: 20MCG DAILY SC
     Route: 058
     Dates: start: 202201

REACTIONS (7)
  - Illness [None]
  - Abdominal distension [None]
  - Loss of consciousness [None]
  - Nephrolithiasis [None]
  - Renal disorder [None]
  - Obstruction [None]
  - Therapy interrupted [None]

NARRATIVE: CASE EVENT DATE: 20220501
